FAERS Safety Report 8464572-2 (Version None)
Quarter: 2012Q2

REPORT INFORMATION
  Report Type: 
  Country: None (occurrence: None)
  Receive Date: 20120620
  Receipt Date: 20120620
  Transmission Date: 20120825
  Serious: No
  Sender: FDA-Public Use
  Company Number: None

PATIENT
  Sex: Female

DRUGS (1)
  1. FORTEO [Suspect]
     Dosage: 20MCG DAILY SUBQ
     Route: 058
     Dates: start: 20120321, end: 20120518

REACTIONS (4)
  - CONSTIPATION [None]
  - MEMORY IMPAIRMENT [None]
  - NERVOUSNESS [None]
  - EMOTIONAL DISORDER [None]
